FAERS Safety Report 8181321-6 (Version None)
Quarter: 2012Q1

REPORT INFORMATION
  Report Type: 
  Country: None (occurrence: None)
  Receive Date: 20120302
  Receipt Date: 20120229
  Transmission Date: 20120608
  Serious: No
  Sender: FDA-Public Use
  Company Number: US-PFIZER INC-2012054455

PATIENT
  Sex: Female

DRUGS (1)
  1. SUTENT [Suspect]
     Indication: THYROID CANCER
     Dosage: 37.5 MG, 1X/DAY
     Route: 048
     Dates: start: 20120210

REACTIONS (2)
  - DRY MOUTH [None]
  - OROPHARYNGEAL PAIN [None]
